FAERS Safety Report 10301298 (Version 1)
Quarter: 2014Q3

REPORT INFORMATION
  Report Type: Spontaneous
  Country: US (occurrence: None)
  Receive Date: 20140708
  Receipt Date: 20140708
  Transmission Date: 20150326
  Serious: Yes (Other)
  Sender: FDA-Public Use
  Company Number: DEP_02164_2014

PATIENT
  Age: 84 Year
  Sex: Female
  Weight: 81.19 kg

DRUGS (3)
  1. GRALISE [Suspect]
     Active Substance: GABAPENTIN
     Indication: OFF LABEL USE
     Dosage: (SAMPLE PACK, TITRATED UP TO 1800 MG ONCE DAILY, WITH THE EVENING MEAL ORAL)
     Route: 048
     Dates: start: 20140414, end: 201405
  2. GRALISE [Suspect]
     Active Substance: GABAPENTIN
     Indication: NEUROPATHY PERIPHERAL
     Dosage: (SAMPLE PACK, TITRATED UP TO 1800 MG ONCE DAILY, WITH THE EVENING MEAL ORAL)
     Route: 048
     Dates: start: 20140414, end: 201405
  3. TEGRETOL [Concomitant]
     Active Substance: CARBAMAZEPINE

REACTIONS (7)
  - Feeling abnormal [None]
  - Dyspnoea [None]
  - Pain [None]
  - Thinking abnormal [None]
  - Pain in extremity [None]
  - Suicidal ideation [None]
  - Depressed mood [None]

NARRATIVE: CASE EVENT DATE: 20140414
